FAERS Safety Report 7281043-X (Version None)
Quarter: 2011Q1

REPORT INFORMATION
  Report Type: 
  Country: None (occurrence: None)
  Receive Date: 20110131
  Receipt Date: 20110113
  Transmission Date: 20110831
  Serious: Yes (Hospitalization)
  Sender: FDA-Public Use
  Company Number: 2008S1007299

PATIENT
  Age: 61 Year
  Sex: Female
  Weight: 66.2252 kg

DRUGS (11)
  1. CRESTOR [Concomitant]
  2. PHOSPHOSODA GINGER LEMON [Suspect]
     Indication: COLONOSCOPY
     Dosage: 45 ML, PO
     Route: 048
     Dates: start: 20080305, end: 20080305
  3. AMBIEN [Concomitant]
  4. METFORMIN HCL [Concomitant]
  5. ALEVE [Concomitant]
  6. ASPIRIN [Concomitant]
  7. METFORMIN HCL [Concomitant]
  8. DILACOR XR [Concomitant]
  9. GLYBURIDE [Concomitant]
  10. LOTENSIN [Concomitant]
  11. DULCOLAX [Suspect]
     Indication: COLONOSCOPY
     Dosage: 2 UNIT, X1; PO
     Route: 048
     Dates: start: 20080305, end: 20080305

REACTIONS (10)
  - INFLUENZA [None]
  - HIATUS HERNIA [None]
  - NAUSEA [None]
  - GASTRITIS EROSIVE [None]
  - COLONIC POLYP [None]
  - RENAL FAILURE ACUTE [None]
  - VOMITING [None]
  - DIARRHOEA [None]
  - ANAEMIA [None]
  - POST PROCEDURAL HAEMORRHAGE [None]
